FAERS Safety Report 9015147 (Version 1)
Quarter: 2013Q1

REPORT INFORMATION
  Report Type: Spontaneous
  Country: US (occurrence: US)
  Receive Date: 20130116
  Receipt Date: 20130116
  Transmission Date: 20140127
  Serious: Yes (Other)
  Sender: FDA-Public Use
  Company Number: US-009507513-0905USA00450

PATIENT
  Age: 70 Year
  Sex: Female

DRUGS (4)
  1. SINGULAIR [Suspect]
     Route: 048
     Dates: start: 2004
  2. ADVAIR [Suspect]
     Indication: ASTHMA
     Dosage: 1 PUFF VARIABLE DOSE
     Route: 055
     Dates: start: 200602
  3. VENTOLIN (ALBUTEROL SULFATE) [Suspect]
     Dosage: UNK
  4. XALATAN [Concomitant]

REACTIONS (8)
  - Glaucoma [Not Recovered/Not Resolved]
  - Immune system disorder [Not Recovered/Not Resolved]
  - Cataract [Not Recovered/Not Resolved]
  - Renal cyst [Not Recovered/Not Resolved]
  - Herpes zoster [Not Recovered/Not Resolved]
  - Arthritis [Not Recovered/Not Resolved]
  - Throat irritation [Not Recovered/Not Resolved]
  - Drug effect decreased [Unknown]
